FAERS Safety Report 7887786 (Version 2)
Quarter: 2012Q4

REPORT INFORMATION
  Report Type: 
  Country: US (occurrence: US)
  Receive Date: 20110406
  Receipt Date: 20120905
  Transmission Date: 20130627
  Serious: Yes (Hospitalization)
  Sender: FDA-Public Use
  Company Number: US-ASTRAZENECA-2011SE17440

PATIENT
  Age: 45 Year
  Sex: Female
  Weight: 73.5 kg

DRUGS (16)
  1. SEROQUEL XR [Suspect]
     Indication: BIPOLAR DISORDER
     Route: 048
     Dates: start: 2007, end: 2009
  2. SEROQUEL XR [Suspect]
     Indication: BIPOLAR DISORDER
     Route: 048
     Dates: start: 2009
  3. NEXIUM [Suspect]
     Route: 048
  4. ABILIFY [Concomitant]
  5. BACLOFEN [Concomitant]
  6. EFFEXOR XR [Concomitant]
  7. MYACALCIN SPRAY [Concomitant]
     Indication: OSTEOPOROSIS
  8. TRAZODONE [Concomitant]
  9. LYRICA [Concomitant]
  10. LORAZEPAM [Concomitant]
  11. FLEXERIL [Concomitant]
  12. SUCALFATE [Concomitant]
  13. VYVANSE [Concomitant]
  14. AMITIZA [Concomitant]
  15. VALTREX [Concomitant]
  16. TYSABRI [Concomitant]

REACTIONS (7)
  - Pancreatic neoplasm [Unknown]
  - Pain [Unknown]
  - Herpes zoster [Unknown]
  - Chronic obstructive pulmonary disease [Unknown]
  - Eructation [Unknown]
  - Abdominal pain [Unknown]
  - Constipation [Unknown]
